FAERS Safety Report 25770489 (Version 1)
Quarter: 2025Q3

REPORT INFORMATION
  Report Type: Spontaneous
  Country: EU (occurrence: EU)
  Receive Date: 20250908
  Receipt Date: 20250908
  Transmission Date: 20251020
  Serious: Yes (Other)
  Sender: OXFORD PHARMACEUTICALS, LLC
  Company Number: EU-Oxford Pharmaceuticals, LLC-2184034

PATIENT
  Age: 56 Year
  Sex: Male

DRUGS (1)
  1. SIMVASTATIN [Suspect]
     Active Substance: SIMVASTATIN
     Indication: Cardiovascular event prophylaxis

REACTIONS (1)
  - Immune-mediated myositis [Recovered/Resolved]
